FAERS Safety Report 7433189-0 (Version None)
Quarter: 2011Q2

REPORT INFORMATION
  Report Type: 
  Country: None (occurrence: None)
  Receive Date: 20110422
  Receipt Date: 20110419
  Transmission Date: 20111010
  Serious: Yes (Hospitalization)
  Sender: FDA-Public Use
  Company Number: US-B.I. PHARMACEUTICALS,INC./RIDGEFIELD-2010-BP-10415BP

PATIENT
  Sex: Female

DRUGS (16)
  1. LASIX [Concomitant]
     Indication: BLOOD CHOLESTEROL INCREASED
  2. MULTI-VITAMIN [Concomitant]
     Indication: PROPHYLAXIS
  3. XANAX [Concomitant]
     Indication: ANXIETY
  4. ASPIRIN [Concomitant]
     Indication: PROPHYLAXIS
  5. METAMUCIL-2 [Concomitant]
     Indication: CONSTIPATION
  6. LANTUS [Concomitant]
     Indication: DIABETES MELLITUS
     Dates: start: 20100501
  7. PRILOSEC [Concomitant]
     Indication: GASTROOESOPHAGEAL REFLUX DISEASE
  8. CALCIUM [Concomitant]
     Indication: SUPPLEMENTATION THERAPY
  9. NOVOLOG [Concomitant]
     Indication: DIABETES MELLITUS
     Dates: start: 20100501
  10. KLOR-CON [Concomitant]
     Indication: BLOOD POTASSIUM DECREASED
  11. VYTORIN [Concomitant]
     Indication: BLOOD CHOLESTEROL INCREASED
  12. OXYCONTIN [Concomitant]
     Indication: BACK PAIN
  13. SPIRIVA [Suspect]
     Indication: CHRONIC OBSTRUCTIVE PULMONARY DISEASE
     Dosage: 18 MCG
     Route: 055
     Dates: start: 20100601, end: 20100901
  14. FOSAMAX [Concomitant]
     Indication: OSTEOPOROSIS
  15. ZOFRAN [Concomitant]
     Indication: PANCREATITIS
  16. PERCOCET [Concomitant]
     Indication: BACK PAIN

REACTIONS (3)
  - MULTIPLE FRACTURES [None]
  - BLOOD GLUCOSE DECREASED [None]
  - SPINAL COMPRESSION FRACTURE [None]
